FAERS Safety Report 21330588 (Version 1)
Quarter: 2022Q3

REPORT INFORMATION
  Report Type: Spontaneous
  Country: US (occurrence: None)
  Receive Date: 20220913
  Receipt Date: 20220913
  Transmission Date: 20221027
  Serious: Yes (Hospitalization)
  Sender: FDA-Public Use
  Company Number: None

PATIENT
  Age: 91 Year
  Sex: Male
  Weight: 95.25 kg

DRUGS (1)
  1. WARFARIN SODIUM [Suspect]
     Active Substance: WARFARIN SODIUM
     Indication: Atrial fibrillation
     Dosage: 1 TAB AT BEDTIME PO?
     Route: 048
     Dates: start: 20150423, end: 20220622

REACTIONS (7)
  - Haemorrhage [None]
  - Gastrointestinal haemorrhage [None]
  - Faeces discoloured [None]
  - Abdominal pain [None]
  - Diverticulum [None]
  - Extra dose administered [None]
  - Haemoglobin decreased [None]

NARRATIVE: CASE EVENT DATE: 20220619
